FAERS Safety Report 8807890 (Version 4)
Quarter: 2012Q4

REPORT INFORMATION
  Report Type: 
  Country: JP (occurrence: JP)
  Receive Date: 20120925
  Receipt Date: 20121102
  Transmission Date: 20130627
  Serious: Yes (Hospitalization, Other)
  Sender: FDA-Public Use
  Company Number: JP-PFIZER INC-2012235193

PATIENT
  Age: 86 Year
  Sex: Female

DRUGS (4)
  1. LYRICA [Suspect]
     Indication: SCIATICA
     Dosage: 75 mg, 2x/day
     Route: 048
     Dates: start: 20120203, end: 20120913
  2. CRAVIT [Concomitant]
     Dosage: UNK
  3. BENET [Concomitant]
  4. EDIROL [Concomitant]

REACTIONS (2)
  - Gastric ulcer [Unknown]
  - Heart rate increased [Unknown]
